FAERS Safety Report 9656068 (Version 1)
Quarter: 2013Q4

REPORT INFORMATION
  Report Type: Spontaneous
  Country: US (occurrence: US)
  Receive Date: 20131030
  Receipt Date: 20131030
  Transmission Date: 20140711
  Serious: Yes (Death, Hospitalization)
  Sender: FDA-Public Use
  Company Number: US-SA-2013SA109316

PATIENT
  Sex: Male

DRUGS (2)
  1. LANTUS SOLOSTAR [Suspect]
     Route: 065
  2. SOLOSTAR [Concomitant]

REACTIONS (4)
  - Cardiac failure congestive [Fatal]
  - Fluid overload [Fatal]
  - Neuropathy peripheral [Fatal]
  - Diabetes mellitus [Fatal]
